FAERS Safety Report 18133255 (Version 12)
Quarter: 2021Q2

REPORT INFORMATION
  Report Type: Spontaneous
  Country: JP (occurrence: JP)
  Receive Date: 20200811
  Receipt Date: 20210527
  Transmission Date: 20210717
  Serious: Yes (Other)
  Sender: FDA-Public Use
  Company Number: JP-ASTELLAS-2020JP011726

PATIENT
  Age: 75 Year
  Sex: Male

DRUGS (6)
  1. ITRACONAZOLE. [Concomitant]
     Active Substance: ITRACONAZOLE
     Indication: PRODUCT USED FOR UNKNOWN INDICATION
     Dosage: UNK UNK, UNKNOWN FREQ.
     Route: 065
  2. CELESTAMINE [Suspect]
     Active Substance: BETAMETHASONE\DEXCHLORPHENIRAMINE MALEATE
     Indication: RASH
     Dosage: UNK UNK, UNKNOWN FREQ.
     Route: 048
     Dates: end: 20210309
  3. XOSPATA [Suspect]
     Active Substance: GILTERITINIB
     Indication: ACUTE MYELOID LEUKAEMIA
     Route: 048
     Dates: start: 20200706
  4. XOSPATA [Suspect]
     Active Substance: GILTERITINIB
     Route: 048
  5. XOSPATA [Suspect]
     Active Substance: GILTERITINIB
     Route: 048
     Dates: start: 20210212
  6. URSODEOXYCHOLIC ACID [Concomitant]
     Active Substance: URSODIOL
     Indication: HEPATIC FUNCTION ABNORMAL
     Dosage: UNK,UNK, UNKNOWN FREQ.
     Route: 065

REACTIONS (10)
  - Hepatic function abnormal [Recovering/Resolving]
  - Constipation [Recovered/Resolved]
  - Renal impairment [Recovered/Resolved]
  - Taste disorder [Unknown]
  - Haemorrhage subcutaneous [Recovered/Resolved]
  - Myelosuppression [Not Recovered/Not Resolved]
  - Haematuria [Not Recovered/Not Resolved]
  - Dizziness [Unknown]
  - Pollakiuria [Unknown]
  - Rash [Unknown]

NARRATIVE: CASE EVENT DATE: 20200806
